FAERS Safety Report 15015690 (Version 1)
Quarter: 2018Q2

REPORT INFORMATION
  Report Type: Spontaneous
  Country: US (occurrence: US)
  Receive Date: 20180615
  Receipt Date: 20180615
  Transmission Date: 20180711
  Serious: Yes (Other)
  Sender: FDA-Public Use
  Company Number: US-SA-2018SA003856

PATIENT
  Age: 66 Year
  Sex: Female
  Weight: 92.52 kg

DRUGS (6)
  1. ANASTROZOLE. [Concomitant]
     Active Substance: ANASTROZOLE
     Dosage: UNK UNK,UNK
     Route: 065
     Dates: start: 2015
  2. SYNTHROID [Concomitant]
     Active Substance: LEVOTHYROXINE SODIUM
     Dosage: 88 UG,QD
     Route: 065
     Dates: start: 2007
  3. TAXOTERE [Suspect]
     Active Substance: DOCETAXEL
     Indication: BREAST CANCER FEMALE
     Dosage: 147 MG,Q3W
     Route: 042
     Dates: start: 20150702, end: 20150702
  4. TAXOTERE [Suspect]
     Active Substance: DOCETAXEL
     Dosage: 147 MG,Q3W
     Route: 042
     Dates: start: 20151015, end: 20151015
  5. PARAPLATIN [Concomitant]
     Active Substance: CARBOPLATIN
     Dosage: 471 MG
  6. LISINOPRIL. [Concomitant]
     Active Substance: LISINOPRIL
     Dosage: UNK UNK,QD
     Route: 065
     Dates: start: 2007

REACTIONS (1)
  - Alopecia [Recovering/Resolving]

NARRATIVE: CASE EVENT DATE: 201508
